FAERS Safety Report 6804381-0 (Version None)
Quarter: 2010Q2

REPORT INFORMATION
  Report Type: 
  Country: None (occurrence: None)
  Receive Date: 20100628
  Receipt Date: 20070420
  Transmission Date: 20101027
  Serious: Yes (Hospitalization)
  Sender: FDA-Public Use
  Company Number: US-PFIZER INC-2007012608

PATIENT
  Sex: Male
  Weight: 86.2 kg

DRUGS (1)
  1. SUTENT [Suspect]
     Indication: RENAL CANCER METASTATIC
     Route: 048
     Dates: start: 20070111, end: 20070126

REACTIONS (3)
  - DEHYDRATION [None]
  - DYSGEUSIA [None]
  - STOMATITIS [None]
